FAERS Safety Report 24225101 (Version 2)
Quarter: 2024Q3

REPORT INFORMATION
  Report Type: Spontaneous
  Country: TR (occurrence: TR)
  Receive Date: 20240820
  Receipt Date: 20240904
  Transmission Date: 20241017
  Serious: Yes (Other)
  Sender: NOVO NORDISK
  Company Number: TR-NOVOPROD-1270606

PATIENT
  Age: 85 Year
  Sex: Male
  Weight: 96 kg

DRUGS (4)
  1. INSULIN ASPART\INSULIN DEGLUDEC [Suspect]
     Active Substance: INSULIN ASPART\INSULIN DEGLUDEC
     Indication: Type 2 diabetes mellitus
     Dosage: 30 IU, TID
  2. BETAHISTINE [Concomitant]
     Active Substance: BETAHISTINE
     Indication: Parkinson^s disease
     Dosage: 16 MG
  3. INDAPAMIDE [Concomitant]
     Active Substance: INDAPAMIDE
     Indication: Product used for unknown indication
     Dosage: 1.5 MG, QD (IN MORNING)
  4. DESAL [DESLORATADINE] [Concomitant]
     Indication: Product used for unknown indication
     Dosage: 20 MG, QD

REACTIONS (4)
  - Neoplasm malignant [Not Recovered/Not Resolved]
  - Thrombosis [Unknown]
  - Renal failure [Unknown]
  - Product dose omission issue [Unknown]

NARRATIVE: CASE EVENT DATE: 20190301
